APPROVED DRUG PRODUCT: TIMOLOL MALEATE
Active Ingredient: TIMOLOL MALEATE
Strength: EQ 0.5% BASE
Dosage Form/Route: SOLUTION/DROPS;OPHTHALMIC
Application: A217195 | Product #001 | TE Code: AT3
Applicant: SENTISS PHARMA PRIVATE LTD
Approved: May 8, 2023 | RLD: No | RS: No | Type: RX